FAERS Safety Report 20422852 (Version 1)
Quarter: 2022Q1

REPORT INFORMATION
  Report Type: Spontaneous
  Country: US (occurrence: None)
  Receive Date: 20220203
  Receipt Date: 20220203
  Transmission Date: 20220423
  Serious: Yes (Hospitalization)
  Sender: FDA-Public Use
  Company Number: None

PATIENT
  Age: 67 Year
  Sex: Female

DRUGS (20)
  1. SOTROVIMAB [Suspect]
     Active Substance: SOTROVIMAB
     Indication: COVID-19
     Dosage: FREQUENCY : ONCE;?
     Route: 042
     Dates: start: 20220121, end: 20220121
  2. albuterol HFA 90 mcg/actuation inhaler [Concomitant]
  3. amLODIPine (NORVASC) 10 mg tablet [Concomitant]
  4. aspirin, buffered (BUFFERIN) 81 mg tablet [Concomitant]
  5. atorvastatin (LIPITOR) 80 mg tablet [Concomitant]
  6. carVEDilol (COREG) 25 mg tablet [Concomitant]
  7. ceTIRIzine (ZyrTEC) 10 mg tablet [Concomitant]
  8. cholecalciferol (VITAMIN D3) 1,000 unit capsule [Concomitant]
  9. cinacalcet (SENSIPAR) 30 mg tablet [Concomitant]
  10. clopidogreL (PLAvix) 75 mg tablet [Concomitant]
  11. ezetimibe (ZetiA) 10 mg tablet [Concomitant]
  12. fluticasone (FLONASE) 50 mcg/actuation nasal spray [Concomitant]
  13. folic acid-B cplx-C-selen-zinc [Concomitant]
  14. furosemide (LASIX) 80 mg tablet [Concomitant]
  15. glipiZIDE (Glucotrol XL) 2.5 mg 24 hr tablet [Concomitant]
  16. losartan (COZAAR) 50 mg tablet [Concomitant]
  17. nitroglycerin (NITROSTAT) 0.4 mg SL tablet [Concomitant]
  18. ondansetron ODT (ZOFRAN-ODT) 4 mg disintegrating tablet [Concomitant]
  19. spironolactone (ALDACTONE) 25 mg tablet [Concomitant]
  20. sucroferric oxyhydroxide (Velphoro) 500 mg tablet,chewable [Concomitant]

REACTIONS (7)
  - Hypoxia [None]
  - COVID-19 [None]
  - Dyspnoea [None]
  - Fibrin D dimer increased [None]
  - Renal failure [None]
  - Dialysis [None]
  - Pulmonary oedema [None]

NARRATIVE: CASE EVENT DATE: 20220122
